FAERS Safety Report 18499153 (Version 1)
Quarter: 2020Q4

REPORT INFORMATION
  Report Type: Spontaneous
  Country: RU (occurrence: RU)
  Receive Date: 20201113
  Receipt Date: 20201113
  Transmission Date: 20210114
  Serious: Yes (Congenital Anomaly, Other)
  Sender: FDA-Public Use
  Company Number: RU-UCBSA-2020044593

PATIENT

DRUGS (1)
  1. LACOSAMIDE. [Suspect]
     Active Substance: LACOSAMIDE
     Indication: EPILEPSY
     Dosage: 400 MG DAILY
     Route: 064

REACTIONS (3)
  - Congenital central nervous system anomaly [Unknown]
  - Maternal exposure during pregnancy [Unknown]
  - Cytogenetic abnormality [Not Recovered/Not Resolved]
